FAERS Safety Report 6825018-0 (Version None)
Quarter: 2010Q3

REPORT INFORMATION
  Report Type: 
  Country: None (occurrence: None)
  Receive Date: 20100708
  Receipt Date: 20061220
  Transmission Date: 20110219
  Serious: No
  Sender: FDA-Public Use
  Company Number: US-PFIZER INC-2006153609

PATIENT

DRUGS (3)
  1. CHANTIX [Suspect]
     Indication: SMOKING CESSATION THERAPY
  2. SEROQUEL [Suspect]
  3. TRILEPTAL [Suspect]

REACTIONS (1)
  - DRUG INEFFECTIVE [None]
